FAERS Safety Report 6703142-0 (Version None)
Quarter: 2010Q2

REPORT INFORMATION
  Report Type: 
  Country: None (occurrence: None)
  Receive Date: 20100430
  Receipt Date: 20100420
  Transmission Date: 20101027
  Serious: No
  Sender: FDA-Public Use
  Company Number: US-BIOGENIDEC-2010BI009758

PATIENT
  Age: 50 Year
  Sex: Female

DRUGS (10)
  1. TYSABRI [Suspect]
     Indication: MULTIPLE SCLEROSIS
     Route: 042
     Dates: start: 20090609
  2. FLEXERIL [Concomitant]
     Indication: MUSCLE SPASTICITY
  3. BACLOFEN [Concomitant]
     Indication: MUSCLE SPASTICITY
  4. TIZANIDINE HCL [Concomitant]
  5. OXYBUTYNIN CHLORIDE [Concomitant]
  6. FLUOXETINE [Concomitant]
  7. NUVIGIL [Concomitant]
  8. MELOXICAM [Concomitant]
  9. HYDROCODONE BITARTRATE [Concomitant]
  10. VITAMIN TAB [Concomitant]

REACTIONS (3)
  - MENINGIOMA [None]
  - MUSCLE SPASTICITY [None]
  - NERVOUSNESS [None]
